FAERS Safety Report 8120131 (Version 6)
Quarter: 2013Q3

REPORT INFORMATION
  Report Type: Report from Study
  Country: JP (occurrence: JP)
  Receive Date: 20110905
  Receipt Date: 20130802
  Transmission Date: 20140515
  Serious: Yes (Hospitalization)
  Sender: FDA-Public Use
  Company Number: PHHY2011JP76086

PATIENT
  Sex: Female
  Weight: 58 kg

DRUGS (18)
  1. AMN107 [Suspect]
     Indication: CHRONIC MYELOID LEUKAEMIA
     Dosage: 800 MG, QD
     Route: 048
     Dates: start: 20110318, end: 20110320
  2. AMN107 [Suspect]
     Dosage: 200 MG, QD
     Route: 048
     Dates: start: 20110323, end: 20110324
  3. AMN107 [Suspect]
     Dosage: 400 MG, QD
     Route: 048
     Dates: start: 20110325, end: 20110830
  4. AMN107 [Suspect]
     Dosage: 400 MG, DAILY
     Route: 048
     Dates: start: 20110915, end: 20110927
  5. AMN107 [Suspect]
     Dosage: 200 MG, DAILY
     Dates: start: 20111021, end: 20111209
  6. AMN107 [Suspect]
     Dosage: 200 MG, DAILY
     Dates: start: 20111226, end: 20120106
  7. AMN107 [Suspect]
     Dosage: 200 MG, DAILY
     Dates: start: 20120113
  8. CARBOPLATIN [Suspect]
     Dosage: 642 MG,
     Dates: start: 20110817
  9. TAXOL [Suspect]
     Dosage: 230 MG,
     Dates: start: 20110817
  10. PREDNISOLONE [Concomitant]
     Indication: RHEUMATOID ARTHRITIS
     Dosage: 5 MG
     Route: 048
     Dates: start: 20110502
  11. PREDNISOLONE [Concomitant]
     Dosage: 10 MG
     Route: 048
     Dates: start: 20110502
  12. PREDNISOLONE [Concomitant]
     Dosage: 9 MG
     Route: 048
  13. PREDNISOLONE [Concomitant]
     Dosage: 8 MG
     Route: 048
  14. PREDNISOLONE [Concomitant]
     Dosage: 7 MG
     Route: 048
  15. BONALON [Concomitant]
     Indication: RHEUMATOID ARTHRITIS
     Dosage: 35 MG, QD
     Route: 048
     Dates: start: 20110318
  16. TAKEPRON [Concomitant]
     Indication: RHEUMATOID ARTHRITIS
     Dosage: 30 MG, QD
     Route: 048
     Dates: start: 20110318
  17. LOXONIN [Concomitant]
     Indication: RHEUMATOID ARTHRITIS
     Dosage: 180 MG, QD
     Route: 048
     Dates: start: 20110318
  18. DECADRON [Concomitant]
     Dosage: UNK UKN, UNK

REACTIONS (1)
  - Uterine cancer [Recovering/Resolving]
